FAERS Safety Report 25487505 (Version 1)
Quarter: 2025Q2

REPORT INFORMATION
  Report Type: Spontaneous
  Country: GB (occurrence: GB)
  Receive Date: 20250627
  Receipt Date: 20250627
  Transmission Date: 20250716
  Serious: Yes (Hospitalization, Disabling)
  Sender: CATALYST PHARMA
  Company Number: GB-CATALYSTPHARMACEUTICALPARTNERS-GB-CATA-25-00886

PATIENT
  Age: 22 Year
  Sex: Male

DRUGS (22)
  1. PERAMPANEL [Suspect]
     Active Substance: PERAMPANEL
     Indication: Status epilepticus
     Dosage: 14.0 MILLIGRAM(S) (14 MILLIGRAM(S), 1 IN 1 DAY),ADDED ON DAY 142 SLOWLY UP-TITRATED
     Route: 048
  2. LACOSAMIDE [Suspect]
     Active Substance: LACOSAMIDE
     Indication: Status epilepticus
     Route: 065
  3. LEVETIRACETAM [Suspect]
     Active Substance: LEVETIRACETAM
     Indication: Status epilepticus
     Route: 065
  4. PHENYTOIN [Suspect]
     Active Substance: PHENYTOIN
     Indication: Status epilepticus
     Route: 065
  5. TOPIRAMATE [Suspect]
     Active Substance: TOPIRAMATE
     Indication: Status epilepticus
     Route: 065
  6. THIOPENTAL [Suspect]
     Active Substance: THIOPENTAL
     Indication: Status epilepticus
     Dosage: 168.0 MILLIGRAM(S)/KILOGRAM (7 MILLIGRAM(S)/KILOGRAM, 1 IN 1 HOUR), EVERY HOUR, UP TO 7 MG/KG/HR
     Route: 065
  7. PHENOBARBITAL [Suspect]
     Active Substance: PHENOBARBITAL
     Indication: Status epilepticus
     Route: 065
  8. METHYLPREDNISOLONE [Suspect]
     Active Substance: METHYLPREDNISOLONE
     Indication: Product used for unknown indication
     Dosage: 1.0 GRAM(S) (1 GRAM(S), 1 IN 1 DAY), 1 GRAM, ONCE A DAY(1 GRAM, ONCE A DAY,TWO SEPARATE PULSES)
     Route: 042
  9. VALPROATE SODIUM [Suspect]
     Active Substance: VALPROATE SODIUM
     Indication: Status epilepticus
     Route: 065
  10. MIDAZOLAM [Suspect]
     Active Substance: MIDAZOLAM
     Indication: Status epilepticus
     Dosage: 480.0 MILLIGRAM(S) (20 MILLIGRAM(S), 1 IN 1 HOUR) (EVERY HOUR,UP TO 20MG/HR)
     Route: 065
  11. REMIFENTANIL [Suspect]
     Active Substance: REMIFENTANIL
     Indication: Sedation
     Route: 065
  12. PROPOFOL [Suspect]
     Active Substance: PROPOFOL
     Indication: Status epilepticus
     Dosage: 120.0 MILLIGRAM(S)/KILOGRAM (5 MILLIGRAM(S)/KILOGRAM, 1 IN 1 HOUR), EVERY HOUR
     Route: 042
  13. PROPOFOL [Suspect]
     Active Substance: PROPOFOL
     Indication: Sedation
  14. KETAMINE [Suspect]
     Active Substance: KETAMINE
     Indication: Status epilepticus
     Dosage: 144.0 MILLIGRAM(S)/KILOGRAM (6 MILLIGRAM(S)/KILOGRAM, 1 IN 1 HOUR), EVERY HOUR
     Route: 065
  15. CLONAZEPAM [Suspect]
     Active Substance: CLONAZEPAM
     Indication: Status epilepticus
     Route: 065
  16. CLOBAZAM [Suspect]
     Active Substance: CLOBAZAM
     Indication: Status epilepticus
     Route: 065
  17. CEFTRIAXONE [Suspect]
     Active Substance: CEFTRIAXONE
     Indication: Evidence based treatment
     Route: 042
  18. LORAZEPAM [Suspect]
     Active Substance: LORAZEPAM
     Indication: Paroxysmal sympathetic hyperactivity
     Route: 065
  19. ACYCLOVIR [Suspect]
     Active Substance: ACYCLOVIR
     Indication: Evidence based treatment
     Route: 042
  20. FENTANYL [Suspect]
     Active Substance: FENTANYL
     Indication: Sedation
     Dosage: 7200 MICROGRAM(S)/KILOGRAM (300 MICROGRAM(S)/KILOGRAM, 1 IN 1 HOUR), EVERY HOUR,UP TO 300 UG/KG/H
     Route: 042
  21. HUMAN IMMUNOGLOBULIN G [Concomitant]
     Active Substance: HUMAN IMMUNOGLOBULIN G
     Indication: Product used for unknown indication
     Dosage: 2 GRAM PER KILOGRAM, ONCE A DAY
     Route: 042
  22. HUMAN PLASMA [Concomitant]
     Active Substance: HUMAN PLASMA
     Indication: Product used for unknown indication
     Route: 065

REACTIONS (12)
  - Deep vein thrombosis [Unknown]
  - Anaemia [Unknown]
  - Weight decreased [Unknown]
  - Intensive care unit acquired weakness [Unknown]
  - Haematuria traumatic [Unknown]
  - Liver function test abnormal [Unknown]
  - Fungal infection [Unknown]
  - Infection [Unknown]
  - Muscle contracture [Unknown]
  - Thrombophlebitis [Unknown]
  - Cognitive disorder [Not Recovered/Not Resolved]
  - Off label use [Unknown]
